FAERS Safety Report 9172561 (Version 1)
Quarter: 2013Q1

REPORT INFORMATION
  Report Type: Spontaneous
  Country: US (occurrence: US)
  Receive Date: 20130319
  Receipt Date: 20130319
  Transmission Date: 20140127
  Serious: No
  Sender: FDA-Public Use
  Company Number: US-009507513-1303USA007078

PATIENT
  Sex: Male

DRUGS (1)
  1. JANUMET XR [Suspect]
     Indication: TYPE 2 DIABETES MELLITUS
     Dosage: UNK, QD, SAMPLES
     Route: 048
     Dates: start: 20130212, end: 20130226

REACTIONS (3)
  - Blood glucose increased [Recovered/Resolved]
  - Adverse event [Recovered/Resolved]
  - Product quality issue [Unknown]
